FAERS Safety Report 14852629 (Version 2)
Quarter: 2018Q2

REPORT INFORMATION
  Report Type: Spontaneous
  Country: CA (occurrence: CA)
  Receive Date: 20180507
  Receipt Date: 20180515
  Transmission Date: 20180711
  Serious: Yes (Other)
  Sender: FDA-Public Use
  Company Number: CA-PFIZER INC-2018001918

PATIENT
  Age: 71 Year
  Sex: Female
  Weight: 44.9 kg

DRUGS (22)
  1. FORMOTEROL FUMARATE/MOMETASONE FUROATE [Concomitant]
     Dosage: 120 MG, DAILY(120 MG, QD)
     Dates: start: 20161111, end: 20161111
  2. ZENHALE [Concomitant]
     Active Substance: FORMOTEROL FUMARATE\MOMETASONE FUROATE
     Indication: GASTROOESOPHAGEAL REFLUX DISEASE
     Dosage: 360 MG, QD
     Route: 055
     Dates: start: 20140814, end: 20160323
  3. ZENHALE [Concomitant]
     Active Substance: FORMOTEROL FUMARATE\MOMETASONE FUROATE
     Dosage: 240 MG, QD
     Route: 055
     Dates: start: 20160323, end: 20160728
  4. ZENHALE [Concomitant]
     Active Substance: FORMOTEROL FUMARATE\MOMETASONE FUROATE
     Dosage: 120 MG, QD
     Route: 055
     Dates: start: 20160728, end: 20161120
  5. PANTOPRAZOLE MAGNESIUM [Concomitant]
     Active Substance: PANTOPRAZOLE MAGNESIUM
     Dosage: 40 MG, QD
     Route: 048
     Dates: start: 20160304, end: 20160330
  6. FORMOTEROL FUMARATE/MOMETASONE FUROATE [Concomitant]
     Indication: GASTROOESOPHAGEAL REFLUX DISEASE
     Dosage: 360 MG, DAILY (360 MG, QD )
     Route: 055
     Dates: start: 20140814, end: 20160323
  7. PREDNISOLONE ACETATE. [Concomitant]
     Active Substance: PREDNISOLONE ACETATE
     Dosage: UNK
     Route: 065
     Dates: start: 20161111, end: 20161111
  8. LEVOTHYROXINE SODIUM. [Concomitant]
     Active Substance: LEVOTHYROXINE SODIUM
     Dosage: 270 MG, QD
     Route: 065
     Dates: start: 20160917, end: 20161209
  9. PANTOPRAZOLE MYLAN [Concomitant]
     Active Substance: PANTOPRAZOLE SODIUM
     Dosage: 40 MG, QD
     Route: 048
     Dates: start: 20160304, end: 20160622
  10. PANTOPRAZOLE MAGNESIUM [Concomitant]
     Active Substance: PANTOPRAZOLE MAGNESIUM
     Dosage: 40 MG, QD
     Route: 048
     Dates: start: 20160528, end: 20161011
  11. FORMOTEROL FUMARATE/MOMETASONE FUROATE [Concomitant]
     Dosage: 240 MG, DAILY(240 MG, QD)
     Route: 055
     Dates: start: 20160323, end: 20160728
  12. PANTOPRAZOLE [Suspect]
     Active Substance: PANTOPRAZOLE
     Indication: GASTROOESOPHAGEAL REFLUX DISEASE
     Dosage: 40 MG, 1X/DAY
     Route: 048
     Dates: start: 20160304
  13. VENTOLIN [Concomitant]
     Active Substance: ALBUTEROL SULFATE
     Dosage: 100 UG, Q4HR
     Route: 055
     Dates: start: 20141010, end: 20160330
  14. PANTOPRAZOLE MAGNESIUM [Concomitant]
     Active Substance: PANTOPRAZOLE MAGNESIUM
     Dosage: 40 MG, QD
     Route: 048
     Dates: start: 20160330, end: 20160430
  15. HYDROMORPHONE [Concomitant]
     Active Substance: HYDROMORPHONE
     Dosage: UNK
     Dates: start: 20160810, end: 20160810
  16. LEVOTHYROXINE SODIUM. [Concomitant]
     Active Substance: LEVOTHYROXINE SODIUM
     Dosage: 90 MG, UNK
     Route: 065
     Dates: start: 20160318, end: 20160318
  17. LEVOTHYROXINE SODIUM. [Concomitant]
     Active Substance: LEVOTHYROXINE SODIUM
     Dosage: 90 MG, QD
     Route: 065
     Dates: start: 20160318, end: 20160622
  18. PREDNISOLONE ACETATE. [Concomitant]
     Active Substance: PREDNISOLONE ACETATE
     Dosage: UNK
     Route: 065
     Dates: start: 20161112, end: 20161209
  19. PANTOPRAZOLE MAGNESIUM [Concomitant]
     Active Substance: PANTOPRAZOLE MAGNESIUM
     Dosage: 40 MG, QD
     Route: 048
     Dates: start: 20160304, end: 20160304
  20. PANTOPRAZOLE MAGNESIUM [Concomitant]
     Active Substance: PANTOPRAZOLE MAGNESIUM
     Dosage: 40 MG, QD
     Route: 048
     Dates: start: 20160430, end: 20160528
  21. LEVOTHYROXINE SODIUM. [Concomitant]
     Active Substance: LEVOTHYROXINE SODIUM
     Dosage: 180 MG, QD
     Route: 065
     Dates: start: 20160622, end: 20160917
  22. FORMOTEROL FUMARATE/MOMETASONE FUROATE [Concomitant]
     Dosage: 120 MG, DAILY(120 MG, QD)
     Route: 055
     Dates: start: 20160728, end: 20161120

REACTIONS (4)
  - Pain [Unknown]
  - Chromaturia [Unknown]
  - Breath odour [Unknown]
  - Discomfort [Unknown]
